FAERS Safety Report 6529991-X (Version None)
Quarter: 2010Q1

REPORT INFORMATION
  Report Type: 
  Country: None (occurrence: None)
  Receive Date: 20100107
  Receipt Date: 20091230
  Transmission Date: 20100710
  Serious: Yes (Other)
  Sender: FDA-Public Use
  Company Number: PL-PFIZER INC-2009310354

PATIENT
  Age: 35 Year
  Sex: Female
  Weight: 61 kg

DRUGS (1)
  1. DEPO-PROVERA [Suspect]
     Indication: CONTRACEPTION
     Dosage: 150 MG, UNK
     Route: 030
     Dates: start: 20050501, end: 20080801

REACTIONS (2)
  - AMENORRHOEA [None]
  - ENDOMETRIAL DISORDER [None]
